FAERS Safety Report 6786096-0 (Version None)
Quarter: 2010Q2

REPORT INFORMATION
  Report Type: 
  Country: None (occurrence: None)
  Receive Date: 20100623
  Receipt Date: 20100519
  Transmission Date: 20101027
  Serious: No
  Sender: FDA-Public Use
  Company Number: US-BAYER-201015846BCC

PATIENT
  Age: 72 Year
  Sex: Female
  Weight: 73 kg

DRUGS (4)
  1. ALEVE [Suspect]
     Indication: ARTHRITIS
     Dosage: TOTAL DAILY DOSE: 880 MG  UNIT DOSE: 220 MG
     Route: 048
     Dates: start: 20080101
  2. FEXOFENADINE [Concomitant]
     Route: 065
  3. LISINOPRIL [Concomitant]
     Route: 065
  4. PREMPRO [Concomitant]
     Dosage: 0.3MG/1.5MG
     Route: 065

REACTIONS (4)
  - ABNORMAL FAECES [None]
  - CONSTIPATION [None]
  - FAECES DISCOLOURED [None]
  - FAECES HARD [None]
